FAERS Safety Report 8786983 (Version 1)
Quarter: 2012Q4

REPORT INFORMATION
  Report Type: Report from Study
  Country: US (occurrence: US)
  Receive Date: 20120914
  Receipt Date: 20120914
  Transmission Date: 20130627
  Serious: No
  Sender: FDA-Public Use
  Company Number: US-VERTEX PHARMACEUTICAL INC.-AE-2012-010563

PATIENT
  Sex: Female

DRUGS (14)
  1. INCIVEK [Suspect]
     Indication: HEPATITIS C
     Route: 048
     Dates: start: 20120524
  2. PEGASYS [Concomitant]
     Indication: HEPATITIS C
     Route: 058
     Dates: start: 20120524
  3. RIBAVIRIN [Concomitant]
     Indication: HEPATITIS C
     Route: 048
     Dates: start: 20120524
  4. NEURONTIN [Concomitant]
     Route: 048
  5. PAXIL [Concomitant]
     Route: 048
  6. CLONAZEPAM [Concomitant]
  7. FLOVENT HFA [Concomitant]
  8. ASPIRIN [Concomitant]
  9. SUBOXONE [Concomitant]
  10. VITAMIN D [Concomitant]
  11. VITAMIN E SOFTGEL [Concomitant]
  12. FISH OIL SOFTGEL [Concomitant]
  13. VITAMIN C [Concomitant]
  14. ALBUTEROL SULFATE HFA [Concomitant]

REACTIONS (6)
  - Blood count abnormal [Not Recovered/Not Resolved]
  - Influenza like illness [Not Recovered/Not Resolved]
  - Vision blurred [Not Recovered/Not Resolved]
  - Somnolence [Unknown]
  - Fatigue [Not Recovered/Not Resolved]
  - Anaemia [Unknown]
